FAERS Safety Report 4574616-6 (Version None)
Quarter: 2005Q1

REPORT INFORMATION
  Report Type: 
  Country: None (occurrence: None)
  Receive Date: 20050204
  Receipt Date: 20050119
  Transmission Date: 20050727
  Serious: Yes (Other)
  Sender: FDA-Public Use
  Company Number: SHI_00012_2005

PATIENT
  Age: 5 Year
  Sex: Female
  Weight: 19.5047 kg

DRUGS (1)
  1. CEDAX [Suspect]
     Indication: PHARYNGITIS STREPTOCOCCAL
     Dates: start: 20030307, end: 20030317

REACTIONS (2)
  - ARTHRALGIA [None]
  - HENOCH-SCHONLEIN PURPURA [None]
